FAERS Safety Report 6144208-6 (Version None)
Quarter: 2009Q2

REPORT INFORMATION
  Report Type: 
  Country: None (occurrence: None)
  Receive Date: 20090406
  Receipt Date: 20090327
  Transmission Date: 20091009
  Serious: Yes (Other)
  Sender: FDA-Public Use
  Company Number: PHHY2009SE12342

PATIENT
  Age: 17 Year
  Sex: Male

DRUGS (1)
  1. RITALIN [Suspect]
     Dosage: 10MG

REACTIONS (1)
  - INTENTIONAL DRUG MISUSE [None]
